FAERS Safety Report 5106020-6 (Version None)
Quarter: 2006Q3

REPORT INFORMATION
  Report Type: 
  Country: None (occurrence: None)
  Receive Date: 20060915
  Receipt Date: 20060123
  Transmission Date: 20061208
  Serious: Yes (Other)
  Sender: FDA-Public Use
  Company Number: GB-ABBOTT-06P-167-0323085-00

PATIENT
  Age: 73 Year
  Sex: Male

DRUGS (4)
  1. ERYTHROMYCIN [Suspect]
     Indication: DERMATITIS
     Route: 048
     Dates: start: 20051209, end: 20051223
  2. AMLODIPINE [Concomitant]
     Indication: BLOOD PRESSURE INCREASED
     Route: 048
     Dates: start: 19940427
  3. BETHAMEASONE 0.1% [Concomitant]
     Indication: DERMATITIS
     Route: 061
     Dates: start: 20040511
  4. HYDROCORTISONE 1.0% [Concomitant]
     Indication: DERMATITIS
     Route: 061
     Dates: start: 20051202

REACTIONS (1)
  - HYPERTENSION [None]
